FAERS Safety Report 5910359-1 (Version None)
Quarter: 2008Q4

REPORT INFORMATION
  Report Type: 
  Country: None (occurrence: None)
  Receive Date: 20081007
  Receipt Date: 20071214
  Transmission Date: 20090506
  Serious: Yes (Other)
  Sender: FDA-Public Use
  Company Number: US-ASTRAZENECA-2007UW28542

PATIENT
  Age: 954 Month
  Sex: Female
  Weight: 69.4 kg

DRUGS (7)
  1. ARIMIDEX [Suspect]
     Indication: BREAST CANCER
     Route: 048
  2. LOTRIL [Concomitant]
  3. LIPITOR [Concomitant]
  4. ATENOLOL [Concomitant]
  5. EFFEXOR [Concomitant]
  6. TRAZODONE HCL [Concomitant]
  7. ASPIRIN [Concomitant]

REACTIONS (1)
  - METASTASES TO BONE [None]
